FAERS Safety Report 12209385 (Version 3)
Quarter: 2016Q3

REPORT INFORMATION
  Report Type: Spontaneous
  Country: US (occurrence: US)
  Receive Date: 20160324
  Receipt Date: 20160706
  Transmission Date: 20161109
  Serious: Yes (Hospitalization)
  Sender: FDA-Public Use
  Company Number: US-LUNDBECK-DKLU2011511

PATIENT
  Age: 63 Year
  Sex: Male

DRUGS (2)
  1. NORTHERA [Suspect]
     Active Substance: DROXIDOPA
     Indication: PRODUCT USED FOR UNKNOWN INDICATION
     Dosage: PATIENT WAS UNSURE OF STRENGTH
     Route: 065
  2. NORTHERA [Suspect]
     Active Substance: DROXIDOPA
     Dosage: PATIENT WAS UNSURE OF STRENGTH
     Route: 065

REACTIONS (3)
  - Drug dose omission [Unknown]
  - Foot operation [Unknown]
  - Fall [Unknown]

NARRATIVE: CASE EVENT DATE: 201606
